FAERS Safety Report 4881385-9 (Version None)
Quarter: 2006Q1

REPORT INFORMATION
  Report Type: 
  Country: None (occurrence: None)
  Receive Date: 20060116
  Receipt Date: 20051222
  Transmission Date: 20060701
  Serious: Yes (Other)
  Sender: FDA-Public Use
  Company Number: PHBS2005BR18858

PATIENT
  Age: 44 Year
  Sex: Male

DRUGS (2)
  1. TEGRETOL [Suspect]
     Indication: EPILEPSY
     Dosage: 400 MG, BID
     Route: 048
     Dates: start: 20010801
  2. PHENOBARBITAL [Concomitant]
     Indication: EPILEPSY
     Route: 048

REACTIONS (7)
  - BLADDER CATHETERISATION [None]
  - DYSURIA [None]
  - ULTRASOUND BLADDER ABNORMAL [None]
  - URETHRAL PAIN [None]
  - URINARY RETENTION [None]
  - URINARY TRACT INFECTION [None]
  - URINARY TRACT OBSTRUCTION [None]
